FAERS Safety Report 4716121-X (Version None)
Quarter: 2005Q3

REPORT INFORMATION
  Report Type: 
  Country: None (occurrence: None)
  Receive Date: 20050718
  Receipt Date: 20050712
  Transmission Date: 20060218
  Serious: Yes (Hospitalization)
  Sender: FDA-Public Use
  Company Number: GB-MERCK-0507GBR00090

PATIENT
  Age: 49 Year
  Sex: Female

DRUGS (4)
  1. SINGULAIR [Suspect]
     Indication: ASTHMA
     Route: 048
     Dates: start: 20030106, end: 20030101
  2. PREDNISOLONE [Suspect]
     Route: 065
  3. ALBUTEROL SULFATE [Concomitant]
     Route: 065
  4. WARFARIN [Concomitant]
     Route: 065

REACTIONS (3)
  - DYSARTHRIA [None]
  - LIVER FUNCTION TEST ABNORMAL [None]
  - MONOPLEGIA [None]
